FAERS Safety Report 21724286 (Version 1)
Quarter: 2022Q4

REPORT INFORMATION
  Report Type: Spontaneous
  Country: US (occurrence: US)
  Receive Date: 20221213
  Receipt Date: 20221213
  Transmission Date: 20230113
  Serious: Yes (Death, Hospitalization, Other)
  Sender: FDA-Public Use
  Company Number: US-TARO PHARMACEUTICALS USA INC.-2022TAR01427

PATIENT
  Age: 32 Year
  Sex: Female

DRUGS (1)
  1. WARFARIN [Suspect]
     Active Substance: WARFARIN
     Indication: Product used for unknown indication
     Dosage: UNK
     Route: 065

REACTIONS (7)
  - Depressed level of consciousness [Fatal]
  - Anion gap [Fatal]
  - Cardiac arrest [Fatal]
  - Haemolysis [Fatal]
  - Coagulopathy [Fatal]
  - Toxicity to various agents [Fatal]
  - Gastrointestinal haemorrhage [Fatal]
